FAERS Safety Report 15776399 (Version 1)
Quarter: 2018Q4

REPORT INFORMATION
  Report Type: Spontaneous
  Country: US (occurrence: US)
  Receive Date: 20181231
  Receipt Date: 20181231
  Transmission Date: 20190205
  Serious: Yes (Other)
  Sender: FDA-Public Use
  Company Number: US-BAYER-2018-242470

PATIENT
  Sex: Female

DRUGS (3)
  1. BAYER LOW DOSE [Suspect]
     Active Substance: ASPIRIN
     Dosage: 2 DF, QD
  2. CELEBREX [Concomitant]
     Active Substance: CELECOXIB
  3. IBUPROFEN. [Suspect]
     Active Substance: IBUPROFEN

REACTIONS (4)
  - Irritable bowel syndrome [Unknown]
  - Intestinal haemorrhage [Unknown]
  - Colitis [Unknown]
  - Epigastric discomfort [Unknown]
